FAERS Safety Report 7727487-0 (Version None)
Quarter: 2011Q3

REPORT INFORMATION
  Report Type: 
  Country: None (occurrence: None)
  Receive Date: 20110902
  Receipt Date: 20110830
  Transmission Date: 20111222
  Serious: Yes (Other)
  Sender: FDA-Public Use
  Company Number: US-PFIZER INC-2011203215

PATIENT
  Sex: Female
  Weight: 95.238 kg

DRUGS (3)
  1. NEURONTIN [Suspect]
     Indication: POLYNEUROPATHY
     Dosage: 2400 MG, DAILY
     Dates: start: 20100601
  2. LEVOTHYROXINE [Concomitant]
     Indication: THYROID DISORDER
     Dosage: 0.75 UG, DAILY
  3. IBUPROFEN [Concomitant]
     Dosage: UNK

REACTIONS (2)
  - WEIGHT INCREASED [None]
  - DRUG INEFFECTIVE [None]
